FAERS Safety Report 10399882 (Version 2)
Quarter: 2014Q4

REPORT INFORMATION
  Report Type: Spontaneous
  Country: US (occurrence: US)
  Receive Date: 20140821
  Receipt Date: 20141105
  Transmission Date: 20150528
  Serious: Yes (Death, Hospitalization, Other)
  Sender: FDA-Public Use
  Company Number: US-GLAXOSMITHKLINE-A1085556A

PATIENT
  Age: 63 Year
  Sex: Female
  Weight: 53.61 kg

DRUGS (1)
  1. VOTRIENT [Suspect]
     Active Substance: PAZOPANIB HYDROCHLORIDE
     Indication: UTERINE CANCER
     Dosage: 400 MG, QD
     Route: 048
     Dates: start: 20140701

REACTIONS (1)
  - Death [Fatal]

NARRATIVE: CASE EVENT DATE: 20140808
